FAERS Safety Report 19215412 (Version 6)
Quarter: 2021Q3

REPORT INFORMATION
  Report Type: Spontaneous
  Country: JP (occurrence: JP)
  Receive Date: 20210505
  Receipt Date: 20210820
  Transmission Date: 20211014
  Serious: Yes (Death, Life-Threatening, Other)
  Sender: FDA-Public Use
  Company Number: JP-BEH-2021131308

PATIENT
  Age: 73 Year
  Sex: Male
  Weight: 67.9 kg

DRUGS (19)
  1. ALBUMINAR?25 [Suspect]
     Active Substance: ALBUMIN HUMAN
     Dosage: UNK
     Route: 065
     Dates: start: 20200804, end: 20200804
  2. FENTANYL. [Concomitant]
     Active Substance: FENTANYL
     Indication: SEDATION
     Dosage: UNK
     Dates: start: 20200802
  3. HANP [Concomitant]
     Active Substance: CARPERITIDE
     Dosage: 2000 MICROGRAM
     Route: 042
     Dates: start: 20200824, end: 20200902
  4. TAZOPIPE [Concomitant]
     Active Substance: PIPERACILLIN SODIUM\TAZOBACTAM SODIUM
     Dosage: 9 GRAM
     Dates: start: 20200902, end: 20200914
  5. ALBUMINAR?25 [Suspect]
     Active Substance: ALBUMIN HUMAN
     Dosage: UNK
     Route: 065
     Dates: start: 20200807, end: 20200807
  6. FRESH FROZEN PLASMA [Concomitant]
     Active Substance: HUMAN PLASMA
     Dosage: UNK
     Route: 065
     Dates: start: 20200727
  7. ALBUMINAR?25 [Suspect]
     Active Substance: ALBUMIN HUMAN
     Indication: HYPOALBUMINAEMIA
     Dosage: UNK
     Route: 065
     Dates: start: 20200727, end: 20200727
  8. ALBUMINAR?25 [Suspect]
     Active Substance: ALBUMIN HUMAN
     Dosage: UNK
     Route: 065
     Dates: start: 20200802, end: 20200802
  9. ALBUMINAR?25 [Suspect]
     Active Substance: ALBUMIN HUMAN
     Dosage: 2 UNITS
     Route: 065
     Dates: start: 20200828, end: 20200828
  10. DORMICUM [MIDAZOLAM] [Concomitant]
     Active Substance: MIDAZOLAM HYDROCHLORIDE
     Indication: SEDATION
     Dosage: UNK
     Dates: start: 20200802
  11. E KEPPRA [Concomitant]
     Active Substance: LEVETIRACETAM
     Dosage: 500 MICROGRAM
     Dates: start: 20200828, end: 20200903
  12. ALBUMINAR?25 [Suspect]
     Active Substance: ALBUMIN HUMAN
     Indication: BLOODY DISCHARGE
     Dosage: 12.5G/50ML 2 VIALS
     Route: 065
     Dates: start: 20200902, end: 20200902
  13. ALBUMINAR?25 [Suspect]
     Active Substance: ALBUMIN HUMAN
     Dosage: 2 UNITS
     Route: 065
     Dates: start: 20200824, end: 20200824
  14. GLUCOSE [Concomitant]
     Active Substance: DEXTROSE
     Indication: HYPERKALAEMIA
     Dosage: UNK
     Dates: start: 20200727
  15. INSULIN [Concomitant]
     Active Substance: INSULIN NOS
     Indication: HYPERKALAEMIA
     Dosage: UNK
     Route: 065
     Dates: start: 20200727
  16. RED BLOOD CELLS [Concomitant]
     Active Substance: HUMAN RED BLOOD CELL
     Indication: ANAEMIA
     Dosage: 2 UNITS
     Route: 065
     Dates: start: 20200826, end: 20200826
  17. ALBUMINAR?25 [Suspect]
     Active Substance: ALBUMIN HUMAN
     Indication: OEDEMA
     Dosage: UNK
     Route: 065
     Dates: start: 20200731, end: 20200731
  18. ALBUMINAR?25 [Suspect]
     Active Substance: ALBUMIN HUMAN
     Dosage: UNK
     Route: 065
     Dates: start: 20200831, end: 20200831
  19. ALBUMINAR?25 [Suspect]
     Active Substance: ALBUMIN HUMAN
     Dosage: UNK
     Route: 065
     Dates: start: 20200907, end: 20200907

REACTIONS (18)
  - Ventricular extrasystoles [Recovering/Resolving]
  - Unresponsive to stimuli [Recovered/Resolved]
  - Cerebral infarction [Fatal]
  - Blood pressure decreased [Recovered/Resolved]
  - Depressed level of consciousness [Fatal]
  - Generalised oedema [Fatal]
  - Anaphylactic shock [Recovered/Resolved]
  - Pleural effusion [Fatal]
  - Rash [Recovered/Resolved]
  - Respiratory depression [Unknown]
  - Pericardial effusion [Fatal]
  - Atelectasis [Fatal]
  - Hypotension [Recovered/Resolved]
  - Seizure [Fatal]
  - Hyporeflexia [Recovered/Resolved]
  - Arrhythmia [Unknown]
  - Renal impairment [Fatal]
  - Angioedema [Recovered/Resolved]

NARRATIVE: CASE EVENT DATE: 20200728
